FAERS Safety Report 22937103 (Version 2)
Quarter: 2023Q4

REPORT INFORMATION
  Report Type: Spontaneous
  Country: BR (occurrence: BR)
  Receive Date: 20230913
  Receipt Date: 20231130
  Transmission Date: 20240110
  Serious: Yes (Hospitalization)
  Sender: FDA-Public Use
  Company Number: BR-ABBOTT-2023A-1367343

PATIENT
  Sex: Female
  Weight: 70 kg

DRUGS (3)
  1. DIVALPROEX SODIUM [Suspect]
     Active Substance: DIVALPROEX SODIUM
     Indication: Bipolar disorder
     Dosage: ONE AT NIGHT AND TWO IN THE MORNING
     Route: 048
  2. RISPERIDONE-GA [Concomitant]
     Indication: Product used for unknown indication
     Dosage: SHE WAS TAKING 3MG, THE DOCTOR REDUCED IT TO 2MG AND NOW SHE TAKES 1 MG
  3. Neozine [Concomitant]
     Indication: Product used for unknown indication
     Dosage: 4 DROPS

REACTIONS (9)
  - Influenza like illness [Recovered/Resolved]
  - Somnolence [Recovered/Resolved]
  - Inappropriate schedule of product administration [Unknown]
  - Hepatic function abnormal [Recovered/Resolved]
  - Pneumonia bacterial [Recovered/Resolved]
  - COVID-19 [Recovered/Resolved with Sequelae]
  - Tremor [Not Recovered/Not Resolved]
  - Respiratory disorder [Recovering/Resolving]
  - Asthenia [Recovering/Resolving]

NARRATIVE: CASE EVENT DATE: 20230801
